FAERS Safety Report 7958826-3 (Version None)
Quarter: 2011Q4

REPORT INFORMATION
  Report Type: 
  Country: None (occurrence: None)
  Receive Date: 20111206
  Receipt Date: 20111130
  Transmission Date: 20120403
  Serious: No
  Sender: FDA-Public Use
  Company Number: US-BAYER-2011-115994

PATIENT
  Sex: Male

DRUGS (2)
  1. MIRENA [Suspect]
  2. MIRENA [Suspect]
     Dosage: UNK
     Dates: end: 20111129

REACTIONS (1)
  - PENILE PAIN [None]
